FAERS Safety Report 13218772 (Version 1)
Quarter: 2017Q1

REPORT INFORMATION
  Report Type: Other
  Country: US (occurrence: US)
  Receive Date: 20170210
  Receipt Date: 20170210
  Transmission Date: 20170428
  Serious: No
  Sender: FDA-Public Use
  Company Number: US-ACORDA-ACO_126733_2016

PATIENT

DRUGS (2)
  1. AMPYRA [Suspect]
     Active Substance: DALFAMPRIDINE
     Dosage: 1 DF, QD
     Route: 065
  2. AMPYRA [Suspect]
     Active Substance: DALFAMPRIDINE
     Indication: GAIT DISTURBANCE
     Dosage: 1 DF, BID
     Route: 065
     Dates: start: 201502

REACTIONS (5)
  - Therapy cessation [Unknown]
  - Inappropriate schedule of drug administration [Unknown]
  - Urinary tract discomfort [Unknown]
  - Gait disturbance [Recovering/Resolving]
  - Social problem [Unknown]
